FAERS Safety Report 12928008 (Version 7)
Quarter: 2017Q1

REPORT INFORMATION
  Report Type: Report from Study
  Country: FR (occurrence: FR)
  Receive Date: 20161110
  Receipt Date: 20170201
  Transmission Date: 20170428
  Serious: Yes (Death, Hospitalization)
  Sender: FDA-Public Use
  Company Number: FR-ROCHE-1852062

PATIENT
  Age: 49 Year
  Sex: Female
  Weight: 48.5 kg

DRUGS (4)
  1. VEMURAFENIB [Suspect]
     Active Substance: VEMURAFENIB
     Indication: NEOPLASM MALIGNANT
     Route: 048
     Dates: start: 20161028, end: 20161203
  2. VEMURAFENIB [Suspect]
     Active Substance: VEMURAFENIB
     Route: 048
     Dates: start: 20161103
  3. KEPPRA [Concomitant]
     Active Substance: LEVETIRACETAM
     Route: 065
     Dates: start: 20151222
  4. VEMURAFENIB [Suspect]
     Active Substance: VEMURAFENIB
     Dosage: ON 05/DEC/2016, RECEIVED THE MOST RECENT DOSE OF 960 MG.
     Route: 048
     Dates: start: 20161116

REACTIONS (5)
  - Aphasia [Fatal]
  - Confusional state [Not Recovered/Not Resolved]
  - Brain oedema [Fatal]
  - Hypersomnia [Fatal]
  - Gait disturbance [Fatal]

NARRATIVE: CASE EVENT DATE: 20161103
